FAERS Safety Report 6247112-8 (Version None)
Quarter: 2009Q2

REPORT INFORMATION
  Report Type: 
  Country: None (occurrence: None)
  Receive Date: 20090626
  Receipt Date: 20090619
  Transmission Date: 20091009
  Serious: Yes (Death, Life-Threatening, Hospitalization, Other)
  Sender: FDA-Public Use
  Company Number: PHHO2005DE11666

PATIENT
  Sex: Male

DRUGS (35)
  1. CYCLOSPORINE [Suspect]
     Indication: RENAL TRANSPLANT
     Dosage: 170 MG, BID
     Route: 048
     Dates: start: 20040630, end: 20041105
  2. DACLIZUMAB [Suspect]
     Indication: RENAL TRANSPLANT
     Dosage: 2 MG/KG, (170MG) ONCE
     Route: 042
     Dates: start: 20040630, end: 20040713
  3. DACLIZUMAB [Suspect]
     Dosage: 85 MG, ONCE PER 2 WEEKS FOR 4 WEEKS
     Route: 042
     Dates: start: 20040714
  4. MYCOPHENOLATE MOFETIL [Suspect]
     Indication: RENAL TRANSPLANT
     Dosage: 1 G, BID
     Route: 048
     Dates: start: 20040630, end: 20041012
  5. MYCOPHENOLATE MOFETIL [Suspect]
     Dosage: 250 MG, BID
     Route: 048
     Dates: start: 20041013, end: 20090519
  6. MYCOPHENOLATE MOFETIL [Suspect]
     Dosage: 1000 MG, QD
     Dates: start: 20090520
  7. PREDNISOLONE [Suspect]
     Indication: RENAL TRANSPLANT
     Dosage: 500 MG, QD
     Route: 042
     Dates: start: 20040630, end: 20040701
  8. PREDNISOLONE [Suspect]
     Dosage: 75 MG, QD
     Route: 048
     Dates: start: 20040701, end: 20040701
  9. PREDNISOLONE [Suspect]
     Dosage: 250 MG, ONCE/SINGLE
     Route: 042
     Dates: start: 20040701, end: 20040701
  10. PREDNISOLONE [Suspect]
     Dosage: 100 MG, QD
     Route: 048
     Dates: start: 20040702, end: 20041018
  11. PREDNISOLONE [Suspect]
     Dosage: 250 MG, QD
     Route: 042
     Dates: start: 20041019, end: 20041020
  12. PREDNISOLONE [Suspect]
     Dosage: NO TREATMENT
     Dates: start: 20041021, end: 20041021
  13. PREDNISOLONE [Suspect]
     Dosage: 100 MG, QD
     Route: 048
     Dates: start: 20041022
  14. TACROLIMUS [Suspect]
     Indication: RENAL TRANSPLANT
     Dosage: UNK, UNK
     Dates: start: 20041104
  15. PANTOZOL [Concomitant]
  16. BELOC ZOK [Concomitant]
  17. EUTHYROX [Concomitant]
  18. SPASMEX [Concomitant]
  19. AMPICILLIN AND SULBACTAM [Concomitant]
  20. KEPINOL [Concomitant]
  21. ACETYLCYSTEINE [Concomitant]
  22. ASPIRIN [Concomitant]
  23. CIPROFLOXACIN [Concomitant]
  24. DIGITOXIN [Concomitant]
  25. FUROSEMID [Concomitant]
  26. FLUVASTATIN [Concomitant]
  27. KALIUM-DURILES [Concomitant]
  28. RISEDRONATE SODIUM [Concomitant]
  29. TEMAZEPAM [Concomitant]
  30. ISONIAZID [Concomitant]
  31. ENOXAPARIN SODIUM [Concomitant]
  32. CLOPIDOGREL [Concomitant]
  33. COLCHICUM AUTUMNALE [Concomitant]
  34. TORASEMIDE [Concomitant]
  35. SULTAMICILLIN [Concomitant]

REACTIONS (15)
  - ABDOMINAL HERNIA [None]
  - ABDOMINAL HERNIA REPAIR [None]
  - ACUTE MYOCARDIAL INFARCTION [None]
  - ANGINA PECTORIS [None]
  - AORTIC VALVE STENOSIS [None]
  - ATRIAL FIBRILLATION [None]
  - DRUG TOXICITY [None]
  - GASTROINTESTINAL NECROSIS [None]
  - HERNIA OBSTRUCTIVE [None]
  - HYPERVOLAEMIA [None]
  - INCISIONAL DRAINAGE [None]
  - KIDNEY TRANSPLANT REJECTION [None]
  - MYOCARDIAL INFARCTION [None]
  - SEROMA [None]
  - TACHYARRHYTHMIA [None]
